FAERS Safety Report 9778305 (Version 1)
Quarter: 2013Q4

REPORT INFORMATION
  Report Type: Spontaneous
  Country: US (occurrence: US)
  Receive Date: 20131223
  Receipt Date: 20131223
  Transmission Date: 20140711
  Serious: Yes (Other)
  Sender: FDA-Public Use
  Company Number: US-RB-061219-13

PATIENT
  Age: 1 Year
  Sex: Male
  Weight: 10 kg

DRUGS (1)
  1. MUCINEX MINI MELTS BUBBLEGUM [Suspect]
     Indication: PRODUCT USED FOR UNKNOWN INDICATION
     Dosage: TOOK HALF A PACKET OF THE PRODUCT
     Route: 048
     Dates: start: 20131217

REACTIONS (1)
  - Epistaxis [Recovered/Resolved]
